FAERS Safety Report 10405705 (Version 1)
Quarter: 2014Q3

REPORT INFORMATION
  Report Type: Not Available
  Country: US (occurrence: US)
  Receive Date: 20140825
  Receipt Date: 20140825
  Transmission Date: 20150326
  Serious: No
  Sender: FDA-Public Use
  Company Number: US-LUPIN PHARMACEUTICALS INC.-E2B_00002295

PATIENT
  Age: 5 Year
  Sex: Female

DRUGS (1)
  1. CIPROFLOXACIN ORAL SUSPENSION 250MG/5ML [Suspect]
     Active Substance: CIPROFLOXACIN
     Indication: SPUTUM DISCOLOURED

REACTIONS (3)
  - Incorrect route of drug administration [Unknown]
  - Drug dose omission [Unknown]
  - No adverse event [Unknown]

NARRATIVE: CASE EVENT DATE: 20140708
